FAERS Safety Report 5846100-0 (Version None)
Quarter: 2008Q3

REPORT INFORMATION
  Report Type: 
  Country: None (occurrence: None)
  Receive Date: 20080813
  Receipt Date: 20080731
  Transmission Date: 20090109
  Serious: No
  Sender: FDA-Public Use
  Company Number: US024270

PATIENT
  Age: 49 Year
  Sex: Male
  Weight: 147.419 kg

DRUGS (13)
  1. FENTORA [Suspect]
     Indication: PAIN
     Dosage: 600 UG BUCCAL
     Route: 002
     Dates: start: 20080601
  2. FENTORA [Suspect]
     Indication: SPINAL FUSION SURGERY
     Dosage: 600 UG BUCCAL
     Route: 002
     Dates: start: 20080601
  3. ACTIQ [Concomitant]
  4. FENOFIBRATE [Concomitant]
  5. LEVOTHYROXINE SODIUM [Concomitant]
  6. LISINOPRIL AND HYDROCHLOROTHIAZIDE [Concomitant]
  7. ROBAXIN [Concomitant]
  8. OXYCONTIN [Concomitant]
  9. DIAZEPAM [Concomitant]
  10. LUNESTA [Concomitant]
  11. MORPHINE [Concomitant]
  12. HYDROCODONE BITARTRATE [Concomitant]
  13. NEBUTONE [Concomitant]

REACTIONS (1)
  - DRUG PRESCRIBING ERROR [None]
